FAERS Safety Report 7599145-7 (Version None)
Quarter: 2011Q3

REPORT INFORMATION
  Report Type: 
  Country: None (occurrence: None)
  Receive Date: 20110711
  Receipt Date: 20090209
  Transmission Date: 20111222
  Serious: Yes (Death, Hospitalization)
  Sender: FDA-Public Use
  Company Number: US-BAYER-200912378NA

PATIENT
  Age: 63 Year
  Sex: Male
  Weight: 103 kg

DRUGS (10)
  1. TRASYLOL [Suspect]
     Indication: CORONARY ARTERY BYPASS
     Dosage: 1 ML, INITIAL DOSE
     Route: 042
     Dates: start: 20061101, end: 20061101
  2. ATENOLOL [Concomitant]
  3. ALBUMIN (HUMAN) [Concomitant]
     Dosage: 500 ML, UNK
     Route: 042
     Dates: start: 20061101
  4. TRASYLOL [Suspect]
     Dosage: 50 ML/HR INFUSION
     Route: 042
     Dates: start: 20061101, end: 20061101
  5. VANCOMYCIN [Concomitant]
     Dosage: 1 G, UNK
     Route: 042
  6. ANCEF [Concomitant]
     Dosage: 2 G, UNK
     Route: 042
  7. NITROGLYCERIN [Concomitant]
  8. TRASYLOL [Suspect]
     Dosage: 200 ML LOADING DOSE
     Route: 042
     Dates: start: 20061101, end: 20061101
  9. HEPARIN [Concomitant]
     Dosage: 46000 U, UNK
     Route: 042
  10. PLATELETS [Concomitant]
     Dosage: 1 U, UNK
     Route: 042
     Dates: start: 20061101

REACTIONS (6)
  - UNEVALUABLE EVENT [None]
  - EMOTIONAL DISTRESS [None]
  - RENAL FAILURE [None]
  - PAIN [None]
  - INJURY [None]
  - RENAL FAILURE ACUTE [None]
